FAERS Safety Report 20169116 (Version 1)
Quarter: 2021Q4

REPORT INFORMATION
  Report Type: Spontaneous
  Country: US (occurrence: US)
  Receive Date: 20211210
  Receipt Date: 20211210
  Transmission Date: 20220303
  Serious: No
  Sender: FDA-Public Use
  Company Number: US-GLAXOSMITHKLINE-USCH2021087030

PATIENT
  Age: 75 Year
  Sex: Female

DRUGS (1)
  1. VOLTAREN [Suspect]
     Active Substance: DICLOFENAC SODIUM
     Indication: Arthritis
     Dosage: UNK
     Dates: start: 20211130, end: 20211130

REACTIONS (3)
  - Stomatitis [Recovering/Resolving]
  - Glossitis [Recovering/Resolving]
  - Product use issue [Recovering/Resolving]

NARRATIVE: CASE EVENT DATE: 20211130
